FAERS Safety Report 6483174-0 (Version None)
Quarter: 2009Q4

REPORT INFORMATION
  Report Type: 
  Country: None (occurrence: None)
  Receive Date: 20091209
  Receipt Date: 20091207
  Transmission Date: 20100525
  Serious: Yes (Disabling)
  Sender: FDA-Public Use
  Company Number: GB-ROCHE-673206

PATIENT
  Age: 4 Year
  Sex: Male

DRUGS (1)
  1. TAMIFLU [Suspect]
     Indication: DRUG USE FOR UNKNOWN INDICATION
     Route: 065
     Dates: start: 20091115

REACTIONS (4)
  - DISORIENTATION [None]
  - MUSCULOSKELETAL DISORDER [None]
  - NIGHTMARE [None]
  - SCREAMING [None]
